FAERS Safety Report 8389105-0 (Version None)
Quarter: 2012Q2

REPORT INFORMATION
  Report Type: 
  Country: None (occurrence: None)
  Receive Date: 20120528
  Receipt Date: 20120522
  Transmission Date: 20120825
  Serious: Yes (Other)
  Sender: FDA-Public Use
  Company Number: PHHY2012JP044659

PATIENT
  Sex: Male

DRUGS (1)
  1. GLEEVEC [Suspect]
     Route: 048

REACTIONS (2)
  - BLOOD ELECTROLYTES DECREASED [None]
  - ELECTROCARDIOGRAM QT PROLONGED [None]
